FAERS Safety Report 6405368-2 (Version None)
Quarter: 2009Q4

REPORT INFORMATION
  Report Type: 
  Country: None (occurrence: None)
  Receive Date: 20091016
  Receipt Date: 20091016
  Transmission Date: 20100525
  Serious: No
  Sender: FDA-Public Use
  Company Number: None

PATIENT
  Sex: Female
  Weight: 58.9676 kg

DRUGS (1)
  1. PAROXETINE HCL [Suspect]
     Indication: DEPRESSION
     Dosage: 20MG 1 DAILY ORAL
     Dates: start: 20090825, end: 20090920

REACTIONS (4)
  - NASAL OEDEMA [None]
  - OEDEMA MOUTH [None]
  - RASH [None]
  - RASH MACULO-PAPULAR [None]
